FAERS Safety Report 6373938-6 (Version None)
Quarter: 2009Q3

REPORT INFORMATION
  Report Type: 
  Country: None (occurrence: None)
  Receive Date: 20090924
  Receipt Date: 20090708
  Transmission Date: 20100115
  Serious: Yes (Other)
  Sender: FDA-Public Use
  Company Number: US-ASTRAZENECA-2009UW13432

PATIENT
  Age: 43 Year
  Sex: Male
  Weight: 127 kg

DRUGS (7)
  1. SEROQUEL [Suspect]
     Indication: SCHIZOAFFECTIVE DISORDER
     Route: 048
     Dates: start: 19970101, end: 20000101
  2. ZYPREXA [Concomitant]
     Dates: start: 19960101, end: 19990101
  3. RISPERDAL [Concomitant]
  4. AMITRIPTYLINE [Concomitant]
  5. ABILIFY [Concomitant]
     Dates: start: 20080101
  6. GEODON [Concomitant]
     Dates: start: 20030101, end: 20060101
  7. HALDOL [Concomitant]
     Dates: start: 20060101, end: 20070101

REACTIONS (4)
  - BLOOD CHOLESTEROL INCREASED [None]
  - DIABETIC COMA [None]
  - HYPOGLYCAEMIA [None]
  - TYPE 2 DIABETES MELLITUS [None]
